FAERS Safety Report 11707023 (Version 1)
Quarter: 2015Q4

REPORT INFORMATION
  Report Type: Report from Study
  Country: US (occurrence: US)
  Receive Date: 20151106
  Receipt Date: 20151106
  Transmission Date: 20160304
  Serious: Yes (Hospitalization)
  Sender: FDA-Public Use
  Company Number: US-ACTELION-A-NJ2015-126817

PATIENT
  Age: 73 Year
  Sex: Male

DRUGS (1)
  1. TRACLEER [Suspect]
     Active Substance: BOSENTAN
     Indication: PULMONARY ARTERIAL HYPERTENSION
     Dosage: UNK
     Route: 048

REACTIONS (7)
  - Ankle fracture [Unknown]
  - Gastrointestinal carcinoma [Unknown]
  - Pulmonary oedema [Unknown]
  - Chest pain [Unknown]
  - Dyspnoea [Unknown]
  - Fall [Unknown]
  - Pneumonia [Unknown]
